FAERS Safety Report 7584747-4 (Version None)
Quarter: 2011Q2

REPORT INFORMATION
  Report Type: 
  Country: None (occurrence: None)
  Receive Date: 20110630
  Receipt Date: 20110620
  Transmission Date: 20111010
  Serious: Yes (Other)
  Sender: FDA-Public Use
  Company Number: PHHY2011MX55533

PATIENT
  Age: 14 Year
  Sex: Female

DRUGS (1)
  1. TRILEPTAL [Suspect]
     Indication: EPILEPSY
     Dosage: 20 MG, UNK
     Dates: start: 20090201

REACTIONS (4)
  - SKIN DISCOLOURATION [None]
  - TREMOR [None]
  - CONVULSION [None]
  - LOSS OF CONSCIOUSNESS [None]
